FAERS Safety Report 16252678 (Version 1)
Quarter: 2019Q2

REPORT INFORMATION
  Report Type: Spontaneous
  Country: IN (occurrence: IN)
  Receive Date: 20190429
  Receipt Date: 20190429
  Transmission Date: 20190711
  Serious: Yes (Death)
  Sender: FDA-Public Use
  Company Number: IN-PFIZER INC-2018454929

PATIENT
  Age: 64 Year
  Sex: Female

DRUGS (1)
  1. PALBACE [Suspect]
     Active Substance: PALBOCICLIB
     Indication: BREAST CANCER METASTATIC
     Dosage: 100 MG, 1X/DAY
     Route: 048
     Dates: start: 201804, end: 201809

REACTIONS (6)
  - Fatigue [Unknown]
  - Hair growth abnormal [Unknown]
  - Sleep disorder [Unknown]
  - Asthenia [Unknown]
  - Death [Fatal]
  - Neoplasm progression [Unknown]
